FAERS Safety Report 10449269 (Version 1)
Quarter: 2014Q3

REPORT INFORMATION
  Report Type: Spontaneous
  Country: AT (occurrence: AT)
  Receive Date: 20140912
  Receipt Date: 20140912
  Transmission Date: 20150326
  Serious: Yes (Other)
  Sender: FDA-Public Use
  Company Number: AT-CIPLA LTD.-2014AT01272

PATIENT

DRUGS (4)
  1. RISPERIDONE. [Suspect]
     Active Substance: RISPERIDONE
     Indication: SCHIZOPHRENIA
     Dosage: ORALLY AT 2MG ON DAY 0 (1MG MORNING AND 1 MG EVENING)
  2. RISPERIDONE. [Suspect]
     Active Substance: RISPERIDONE
     Dosage: ORALLY BETWEEN 4 TO 6 MG/DAY FROM DAY 2 ONWARDS
     Route: 048
  3. RISPERIDONE. [Suspect]
     Active Substance: RISPERIDONE
     Dosage: ORALLY BETWEEN 4 AND 6MG (2 OR 3 MG MORNING AND EVENING) ON DAY 2
  4. RISPERIDONE. [Suspect]
     Active Substance: RISPERIDONE
     Dosage: ORALLY 4MG (2MG MORNING AND EVENING) ON DAY 1

REACTIONS (1)
  - Acute psychosis [Unknown]
